FAERS Safety Report 20478616 (Version 1)
Quarter: 2022Q1

REPORT INFORMATION
  Report Type: Report from Study
  Country: CA (occurrence: CA)
  Receive Date: 20220216
  Receipt Date: 20220216
  Transmission Date: 20220423
  Serious: Yes (Other)
  Sender: FDA-Public Use
  Company Number: CA-JNJFOC-20211112366

PATIENT
  Sex: Male
  Weight: 55 kg

DRUGS (1)
  1. REMICADE [Suspect]
     Active Substance: INFLIXIMAB
     Indication: Crohn^s disease
     Dosage: EXPIRY: 31-JUL-2024, 31-AUG-2024
     Route: 042
     Dates: start: 20190304

REACTIONS (2)
  - Skin plaque [Not Recovered/Not Resolved]
  - Abdominal pain [Not Recovered/Not Resolved]
